FAERS Safety Report 23649941 (Version 1)
Quarter: 2024Q1

REPORT INFORMATION
  Report Type: Spontaneous
  Country: US (occurrence: None)
  Receive Date: 20240319
  Receipt Date: 20240319
  Transmission Date: 20240410
  Serious: No
  Sender: FDA-Public Use
  Company Number: US-ROCHE-3411804

PATIENT
  Sex: Male

DRUGS (1)
  1. ERIVEDGE [Suspect]
     Active Substance: VISMODEGIB
     Indication: Basal cell carcinoma
     Route: 048
     Dates: start: 202306

REACTIONS (7)
  - Nausea [Unknown]
  - Fatigue [Unknown]
  - Cognitive disorder [Unknown]
  - Decreased appetite [Unknown]
  - Dehydration [Unknown]
  - Mental impairment [Unknown]
  - Vomiting [Unknown]
